FAERS Safety Report 16872528 (Version 1)
Quarter: 2019Q4

REPORT INFORMATION
  Report Type: Spontaneous
  Country: ES (occurrence: ES)
  Receive Date: 20191001
  Receipt Date: 20191001
  Transmission Date: 20200122
  Serious: Yes (Other)
  Sender: FDA-Public Use
  Company Number: ES-TEVA-2019-ES-1115252

PATIENT
  Age: 19 Year
  Sex: Female

DRUGS (1)
  1. IBUPROFENO 600 MG 40 COMPRIMIDOS [Suspect]
     Active Substance: IBUPROFEN
     Indication: DYSMENORRHOEA
     Dosage: 600 MG PER 12 HOURS
     Route: 048
     Dates: start: 20190802, end: 20190802

REACTIONS (2)
  - Angioedema [Recovered/Resolved]
  - Lip oedema [Recovered/Resolved]

NARRATIVE: CASE EVENT DATE: 20190802
